FAERS Safety Report 9751233 (Version 1)
Quarter: 2013Q4

REPORT INFORMATION
  Report Type: Spontaneous
  Country: US (occurrence: US)
  Receive Date: 20131212
  Receipt Date: 20131212
  Transmission Date: 20140711
  Serious: No
  Sender: FDA-Public Use
  Company Number: US-BIOGENIDEC-2013BI100693

PATIENT
  Age: 28 Year
  Sex: Female

DRUGS (10)
  1. TECFIDERA [Suspect]
     Indication: MULTIPLE SCLEROSIS
     Route: 048
     Dates: start: 201309
  2. TECFIDERA [Suspect]
     Indication: MULTIPLE SCLEROSIS
     Route: 048
  3. LYRICA [Concomitant]
  4. PROZAC [Concomitant]
  5. FISH OIL [Concomitant]
  6. VITAMIN B COMPLEX [Concomitant]
  7. CRANBERRY [Concomitant]
  8. MAGNESIUM [Concomitant]
  9. CALCIUM [Concomitant]
  10. NAPROXYN [Concomitant]

REACTIONS (1)
  - Nausea [Unknown]
